FAERS Safety Report 25085808 (Version 1)
Quarter: 2025Q1

REPORT INFORMATION
  Report Type: Spontaneous
  Country: US (occurrence: US)
  Receive Date: 20250317
  Receipt Date: 20250317
  Transmission Date: 20250409
  Serious: No
  Sender: MYLAN
  Company Number: US-MYLANLABS-2025M1021042

PATIENT

DRUGS (18)
  1. EPINEPHRINE [Suspect]
     Active Substance: EPINEPHRINE
     Indication: Product used for unknown indication
  2. EPINEPHRINE [Suspect]
     Active Substance: EPINEPHRINE
  3. EPINEPHRINE [Suspect]
     Active Substance: EPINEPHRINE
  4. EPINEPHRINE [Suspect]
     Active Substance: EPINEPHRINE
  5. EPINEPHRINE [Suspect]
     Active Substance: EPINEPHRINE
  6. EPINEPHRINE [Suspect]
     Active Substance: EPINEPHRINE
  7. EPINEPHRINE [Suspect]
     Active Substance: EPINEPHRINE
     Indication: Product used for unknown indication
  8. EPINEPHRINE [Suspect]
     Active Substance: EPINEPHRINE
  9. EPINEPHRINE [Suspect]
     Active Substance: EPINEPHRINE
  10. EPINEPHRINE [Suspect]
     Active Substance: EPINEPHRINE
  11. EPINEPHRINE [Suspect]
     Active Substance: EPINEPHRINE
  12. EPINEPHRINE [Suspect]
     Active Substance: EPINEPHRINE
  13. EPINEPHRINE [Suspect]
     Active Substance: EPINEPHRINE
  14. EPINEPHRINE [Suspect]
     Active Substance: EPINEPHRINE
  15. EPINEPHRINE [Suspect]
     Active Substance: EPINEPHRINE
  16. EPINEPHRINE [Suspect]
     Active Substance: EPINEPHRINE
  17. EPINEPHRINE [Suspect]
     Active Substance: EPINEPHRINE
  18. EPINEPHRINE [Suspect]
     Active Substance: EPINEPHRINE

REACTIONS (3)
  - Liquid product physical issue [Unknown]
  - Product colour issue [Unknown]
  - Product quality issue [Unknown]
